FAERS Safety Report 10025508 (Version 1)
Quarter: 2014Q1

REPORT INFORMATION
  Report Type: Spontaneous
  Country: CH (occurrence: CH)
  Receive Date: 20140320
  Receipt Date: 20140320
  Transmission Date: 20141002
  Serious: Yes (Other)
  Sender: FDA-Public Use
  Company Number: CH-JNJFOC-20140310859

PATIENT
  Age: 62 Year
  Sex: 0

DRUGS (1)
  1. XARELTO [Suspect]
     Indication: OSTEOTOMY
     Route: 048

REACTIONS (2)
  - Thrombosis [Unknown]
  - Drug ineffective [Unknown]
